FAERS Safety Report 23488923 (Version 3)
Quarter: 2024Q2

REPORT INFORMATION
  Report Type: Spontaneous
  Country: JP (occurrence: JP)
  Receive Date: 20240206
  Receipt Date: 20240507
  Transmission Date: 20240716
  Serious: Yes (Death, Life-Threatening, Hospitalization, Other)
  Sender: FDA-Public Use
  Company Number: JP-BRISTOL-MYERS SQUIBB COMPANY-2024-018488

PATIENT
  Age: 94 Year
  Sex: Male
  Weight: 55 kg

DRUGS (3)
  1. ORENCIA [Suspect]
     Active Substance: ABATACEPT
     Indication: Rheumatoid arthritis
     Dosage: DOSE : UNAVAILABLE;     FREQ : UNAVAILABLE
     Route: 041
     Dates: start: 20210526, end: 20231206
  2. AZULFIDINE EN-TABS [Concomitant]
     Active Substance: SULFASALAZINE
     Indication: Rheumatoid arthritis
     Route: 048
     Dates: start: 20200610, end: 20240207
  3. ROXADUSTAT [Concomitant]
     Active Substance: ROXADUSTAT
     Indication: Nephrogenic anaemia
     Route: 048
     Dates: start: 20210922, end: 20240207

REACTIONS (4)
  - Respiratory tract infection [Not Recovered/Not Resolved]
  - Pneumonia [Fatal]
  - Off label use [Unknown]
  - Respiratory failure [Unknown]

NARRATIVE: CASE EVENT DATE: 20240131
